FAERS Safety Report 23101011 (Version 1)
Quarter: 2023Q4

REPORT INFORMATION
  Report Type: Spontaneous
  Country: US (occurrence: None)
  Receive Date: 20231021
  Receipt Date: 20231021
  Transmission Date: 20240110
  Serious: Yes (Hospitalization)
  Sender: FDA-Public Use
  Company Number: None

PATIENT
  Age: 60 Year
  Sex: Male
  Weight: 89 kg

DRUGS (1)
  1. VIVITROL [Suspect]
     Active Substance: NALTREXONE
     Dosage: FREQUENCY : ONCE;?
     Route: 030
     Dates: start: 20230308, end: 20230405

REACTIONS (5)
  - Rash [None]
  - Injection site pain [None]
  - Injection site swelling [None]
  - Injection site warmth [None]
  - Injection site abscess [None]

NARRATIVE: CASE EVENT DATE: 20230324
